FAERS Safety Report 21154230 (Version 3)
Quarter: 2022Q4

REPORT INFORMATION
  Report Type: Other
  Country: PT (occurrence: PT)
  Receive Date: 20220801
  Receipt Date: 20221005
  Transmission Date: 20230113
  Serious: Yes (Disabling)
  Sender: FDA-Public Use
  Company Number: PT-INFARMED-G202207-3198

PATIENT

DRUGS (1)
  1. INFLIXIMAB [Suspect]
     Active Substance: INFLIXIMAB
     Indication: Crohn^s disease
     Dosage: 160 MG, EVERY 15 DAYS
     Route: 058
     Dates: start: 20220506

REACTIONS (6)
  - Eyelid oedema [Unknown]
  - Asthenia [Unknown]
  - Conjunctivitis [Unknown]
  - Arthralgia [Unknown]
  - Dyspnoea [Unknown]
  - Off label use [Unknown]

NARRATIVE: CASE EVENT DATE: 20220506
